FAERS Safety Report 21641264 (Version 5)
Quarter: 2023Q2

REPORT INFORMATION
  Report Type: Report from Study
  Country: US (occurrence: US)
  Receive Date: 20221125
  Receipt Date: 20230503
  Transmission Date: 20230722
  Serious: Yes (Other)
  Sender: FDA-Public Use
  Company Number: US-ABBVIE-4213053

PATIENT
  Sex: Male

DRUGS (3)
  1. SKYRIZI [Suspect]
     Active Substance: RISANKIZUMAB-RZAA
     Indication: Psoriatic arthropathy
     Dosage: WEEK 0
     Route: 058
     Dates: start: 20220805, end: 20220805
  2. SKYRIZI [Suspect]
     Active Substance: RISANKIZUMAB-RZAA
     Indication: Psoriasis
     Dosage: WEEK 4
     Route: 058
     Dates: start: 20220907, end: 20220907
  3. SKYRIZI [Suspect]
     Active Substance: RISANKIZUMAB-RZAA
     Dosage: WEEK 16
     Route: 058
     Dates: start: 20221126

REACTIONS (4)
  - Follicular lymphoma [Not Recovered/Not Resolved]
  - Insomnia [Not Recovered/Not Resolved]
  - Basal cell carcinoma [Unknown]
  - Cold sweat [Not Recovered/Not Resolved]
